FAERS Safety Report 6508511-X (Version None)
Quarter: 2009Q4

REPORT INFORMATION
  Report Type: 
  Country: None (occurrence: None)
  Receive Date: 20091221
  Receipt Date: 20081124
  Transmission Date: 20100525
  Serious: No
  Sender: FDA-Public Use
  Company Number: US-ASTRAZENECA-2008UW26367

PATIENT
  Age: 81 Year
  Sex: Female

DRUGS (6)
  1. CRESTOR [Suspect]
     Indication: BLOOD CHOLESTEROL INCREASED
     Route: 048
     Dates: start: 20080601
  2. CRESTOR [Suspect]
     Indication: RENAL ARTERY OCCLUSION
     Route: 048
     Dates: start: 20080601
  3. FOSAMAX [Concomitant]
  4. ATENOLOL [Concomitant]
  5. STOOL SOFTNER [Concomitant]
     Indication: FAECES HARD
  6. VITAMINS [Concomitant]

REACTIONS (5)
  - AMNESIA [None]
  - CONSTIPATION [None]
  - DECREASED APPETITE [None]
  - DYSGEUSIA [None]
  - GASTRIC DISORDER [None]
